FAERS Safety Report 9339700 (Version 1)
Quarter: 2013Q2

REPORT INFORMATION
  Report Type: Spontaneous
  Country: CA (occurrence: CA)
  Receive Date: 20130610
  Receipt Date: 20130610
  Transmission Date: 20140414
  Serious: Yes (Death)
  Sender: FDA-Public Use
  Company Number: PHHY2013CA058126

PATIENT
  Age: 67 Year
  Sex: Male

DRUGS (5)
  1. SIMULECT [Suspect]
     Dosage: UNK
  2. MYCOPHENOLATE MOFETIL [Suspect]
     Dosage: UNK
  3. PREDNISONE [Suspect]
     Dosage: UNK
  4. TACROLIMUS [Suspect]
     Dosage: UNK
  5. BACTRIM [Concomitant]
     Dosage: UNK

REACTIONS (3)
  - Multi-organ failure [Fatal]
  - Respiratory failure [Fatal]
  - Pneumocystis jirovecii pneumonia [Fatal]
